FAERS Safety Report 7415292 (Version 1)
Quarter: 2020Q3

REPORT INFORMATION
  Report Type: Report from Study
  Country: DE (occurrence: DE)
  Receive Date: 20100610
  Receipt Date: 20100610
  Transmission Date: 20201104
  Serious: Yes (Hospitalization)
  Sender: FDA-Public Use
  Company Number: DE-WYE-H13861310

PATIENT
  Age: 63 Year
  Sex: Male
  Weight: 82 kg

DRUGS (3)
  1. NEXAVAR [Suspect]
     Active Substance: SORAFENIB
     Indication: RENAL CELL CARCINOMA
     Route: 048
     Dates: start: 20100209, end: 20100220
  2. RAMIPRIL. [Concomitant]
     Active Substance: RAMIPRIL
     Indication: HYPERTENSION
     Dosage: NOT PROVIDED
     Dates: start: 200807, end: 20100220
  3. LOPERAMIDE [Concomitant]
     Active Substance: LOPERAMIDE
     Indication: PROPHYLAXIS
     Dosage: NOT PROVIDED
     Route: 065
     Dates: start: 20100215

REACTIONS (2)
  - Fatigue [Recovered/Resolved]
  - Atrial fibrillation [Recovered/Resolved]

NARRATIVE: CASE EVENT DATE: 20100222
